FAERS Safety Report 9776364 (Version 2)
Quarter: 2013Q4

REPORT INFORMATION
  Report Type: Report from Study
  Country: CN (occurrence: CN)
  Receive Date: 20131220
  Receipt Date: 20131220
  Transmission Date: 20140711
  Serious: Yes (Hospitalization)
  Sender: FDA-Public Use
  Company Number: CN-PFIZER INC-2009168753

PATIENT
  Age: 30 Year
  Sex: Male
  Weight: 84.99 kg

DRUGS (2)
  1. LINEZOLID [Suspect]
     Indication: POST PROCEDURAL INFECTION
     Dosage: UNK
     Route: 042
     Dates: start: 20020907, end: 20020922
  2. CISAPRIDE [Concomitant]
     Indication: CONSTIPATION
     Dosage: 10 MG, 3X/DAY
     Route: 048
     Dates: start: 20020924, end: 20020929

REACTIONS (1)
  - Renal failure acute [Not Recovered/Not Resolved]
